FAERS Safety Report 8556731-5 (Version None)
Quarter: 2012Q3

REPORT INFORMATION
  Report Type: 
  Country: None (occurrence: None)
  Receive Date: 20120801
  Receipt Date: 20120726
  Transmission Date: 20120928
  Serious: Yes (Hospitalization)
  Sender: FDA-Public Use
  Company Number: IT-PFIZER INC-2012183743

PATIENT
  Age: 41 Year
  Sex: Male

DRUGS (2)
  1. CARBAMAZEPINE [Suspect]
     Indication: EPILEPSY
     Dosage: 150 MG DAILY
     Route: 048
     Dates: start: 20120628, end: 20120628
  2. VENLAFAXINE HCL [Suspect]
     Indication: ANTIDEPRESSANT THERAPY
     Dosage: 75 MG DAILY
     Route: 048
     Dates: start: 20120628, end: 20120628

REACTIONS (3)
  - INTENTIONAL DRUG MISUSE [None]
  - SOMNOLENCE [None]
  - COMA [None]
